FAERS Safety Report 7991652-8 (Version None)
Quarter: 2011Q4

REPORT INFORMATION
  Report Type: 
  Country: None (occurrence: None)
  Receive Date: 20111219
  Receipt Date: 20111207
  Transmission Date: 20120403
  Serious: Yes (Other)
  Sender: FDA-Public Use
  Company Number: PHEH2011US011159

PATIENT
  Sex: Female

DRUGS (9)
  1. ZOCOR [Suspect]
  2. PLAVIX [Concomitant]
  3. TEMAZEPAM [Concomitant]
  4. DIOVAN HCT [Suspect]
     Dosage: 1 DF, QD
  5. GLYCOAX [Concomitant]
  6. SYNTHROID [Concomitant]
  7. CEREFOLIN [Concomitant]
  8. HEMATINIC [Concomitant]
  9. TOPROL-XL [Concomitant]

REACTIONS (1)
  - BLOOD PRESSURE INCREASED [None]
